FAERS Safety Report 21946811 (Version 3)
Quarter: 2023Q1

REPORT INFORMATION
  Report Type: Spontaneous
  Country: PL (occurrence: PL)
  Receive Date: 20230202
  Receipt Date: 20230221
  Transmission Date: 20230418
  Serious: Yes (Hospitalization, Other)
  Sender: FDA-Public Use
  Company Number: PL-SUN PHARMACEUTICAL INDUSTRIES LTD-2022RR-370357

PATIENT
  Age: 43 Year
  Sex: Female

DRUGS (14)
  1. ZOLEDRONIC ACID [Suspect]
     Active Substance: ZOLEDRONIC ACID
     Indication: Renal cell carcinoma
     Dosage: UNK
     Route: 065
     Dates: start: 201705
  2. ZOLEDRONIC ACID [Suspect]
     Active Substance: ZOLEDRONIC ACID
     Indication: Bone disorder
  3. ZOLEDRONIC ACID [Suspect]
     Active Substance: ZOLEDRONIC ACID
     Indication: Prophylaxis
  4. ZOLEDRONIC ACID [Suspect]
     Active Substance: ZOLEDRONIC ACID
     Indication: Chemotherapy side effect prophylaxis
  5. CABOZANTINIB [Suspect]
     Active Substance: CABOZANTINIB
     Indication: Renal cell carcinoma
     Dosage: 60 MILLIGRAM, QD,(DAILY)
     Route: 065
  6. SUNITINIB [Concomitant]
     Active Substance: SUNITINIB
     Indication: Renal cell carcinoma
     Dosage: 50 MILLIGRAM, QD, 50 MG, QD
     Route: 065
     Dates: start: 201705
  7. SUNITINIB [Concomitant]
     Active Substance: SUNITINIB
     Indication: Neuroendocrine carcinoma
     Dosage: 37.5 MILLIGRAM, QD, 37.5 MG, QD
     Route: 065
  8. SUNITINIB [Concomitant]
     Active Substance: SUNITINIB
     Indication: Metastatic renal cell carcinoma
     Dosage: 20 MILLIGRAM
     Route: 065
  9. SUNITINIB [Concomitant]
     Active Substance: SUNITINIB
     Indication: Metastatic neoplasm
     Dosage: 25 MILLIGRAM, QD, 25 MG, QD
     Route: 065
  10. SUNITINIB [Concomitant]
     Active Substance: SUNITINIB
     Indication: Lung neoplasm malignant
  11. SUNITINIB [Concomitant]
     Active Substance: SUNITINIB
     Indication: Adrenal gland cancer
  12. OCTREOTIDE [Concomitant]
     Active Substance: OCTREOTIDE
     Indication: Neuroendocrine tumour
     Dosage: UNK
     Route: 065
     Dates: start: 2018
  13. LEVOTHYROXINE [Concomitant]
     Active Substance: LEVOTHYROXINE
     Indication: Neuroendocrine tumour
     Dosage: UNK
     Route: 065
     Dates: start: 2017
  14. LEVOTHYROXINE [Concomitant]
     Active Substance: LEVOTHYROXINE
     Indication: Blood thyroid stimulating hormone abnormal

REACTIONS (11)
  - Neoplasm progression [Unknown]
  - Disease progression [Unknown]
  - Blood pressure increased [Unknown]
  - General physical health deterioration [Recovering/Resolving]
  - Blood thyroid stimulating hormone increased [Recovering/Resolving]
  - Blood bilirubin increased [Recovering/Resolving]
  - Palmar-plantar erythrodysaesthesia syndrome [Recovering/Resolving]
  - Osteonecrosis of jaw [Recovered/Resolved]
  - Asthenia [Unknown]
  - Diarrhoea [Unknown]
  - Osteonecrosis [Unknown]

NARRATIVE: CASE EVENT DATE: 20200401
